FAERS Safety Report 12665014 (Version 2)
Quarter: 2016Q3

REPORT INFORMATION
  Report Type: Spontaneous
  Country: US (occurrence: US)
  Receive Date: 20160818
  Receipt Date: 20160916
  Transmission Date: 20161109
  Serious: No
  Sender: FDA-Public Use
  Company Number: US-INCYTE CORPORATION-2016IN004970

PATIENT
  Sex: Female
  Weight: 81 kg

DRUGS (2)
  1. JAKAFI [Suspect]
     Active Substance: RUXOLITINIB
     Indication: POLYCYTHAEMIA VERA
  2. JAKAFI [Suspect]
     Active Substance: RUXOLITINIB
     Indication: MYELOFIBROSIS
     Dosage: 10 MG, BID
     Route: 048
     Dates: start: 20141121

REACTIONS (7)
  - Fatigue [Unknown]
  - Headache [Unknown]
  - Pruritus [Unknown]
  - Arthralgia [Unknown]
  - Pain in extremity [Unknown]
  - Nausea [Unknown]
  - Abdominal discomfort [Unknown]
